FAERS Safety Report 15216260 (Version 1)
Quarter: 2018Q3

REPORT INFORMATION
  Report Type: Report from Study
  Country: BR (occurrence: BR)
  Receive Date: 20180730
  Receipt Date: 20180730
  Transmission Date: 20181010
  Serious: Yes (Other)
  Sender: FDA-Public Use
  Company Number: PHHY2018BR053379

PATIENT
  Sex: Female
  Weight: 63 kg

DRUGS (5)
  1. OCUPRESS [Suspect]
     Active Substance: CARTEOLOL HYDROCHLORIDE
     Indication: PRODUCT USED FOR UNKNOWN INDICATION
     Dosage: UNK
     Route: 047
  2. TRAVATAN Z [Suspect]
     Active Substance: TRAVOPROST
     Indication: GLAUCOMA
     Dosage: 1 GTT, UNK
     Route: 047
  3. COMBIGAN [Suspect]
     Active Substance: BRIMONIDINE TARTRATE\TIMOLOL MALEATE
     Indication: INTRAOCULAR PRESSURE TEST
     Dosage: 1 GTT, BID (MORNING AND NIGHT)
     Route: 047
  4. AZOPT [Suspect]
     Active Substance: BRINZOLAMIDE
     Indication: PRODUCT USED FOR UNKNOWN INDICATION
     Dosage: 1 GTT, BID
     Route: 047
  5. PILOCARPINE. [Suspect]
     Active Substance: PILOCARPINE
     Indication: PRODUCT USED FOR UNKNOWN INDICATION
     Route: 047

REACTIONS (6)
  - Eye disorder [Unknown]
  - Ocular hyperaemia [Unknown]
  - Cataract [Unknown]
  - Dizziness [Unknown]
  - Glaucoma [Not Recovered/Not Resolved]
  - Visual impairment [Unknown]
